FAERS Safety Report 16104617 (Version 1)
Quarter: 2019Q1

REPORT INFORMATION
  Report Type: Spontaneous
  Country: US (occurrence: US)
  Receive Date: 20190322
  Receipt Date: 20190322
  Transmission Date: 20190418
  Serious: No
  Sender: FDA-Public Use
  Company Number: US-ENDO PHARMACEUTICALS INC-2018-041093

PATIENT
  Sex: Male

DRUGS (2)
  1. AVEED [Suspect]
     Active Substance: TESTOSTERONE UNDECANOATE
     Indication: TESTICULAR FAILURE
     Dosage: 250 MG/ML (SINGLE DOSE VIAL 3 ML), ONCE EVERY 10WK (SECOND INJECTION)
     Route: 065
     Dates: start: 2018, end: 2018
  2. AVEED [Suspect]
     Active Substance: TESTOSTERONE UNDECANOATE
     Dosage: 250 MG/ML (SINGLE DOSE VIAL 3 ML), ONCE EVERY 10WK (FIRST INJECTION)
     Route: 065
     Dates: start: 2018

REACTIONS (1)
  - Drug ineffective [Unknown]

NARRATIVE: CASE EVENT DATE: 2018
